FAERS Safety Report 12473966 (Version 2)
Quarter: 2016Q3

REPORT INFORMATION
  Report Type: Spontaneous
  Country: US (occurrence: US)
  Receive Date: 20160616
  Receipt Date: 20160815
  Transmission Date: 20161109
  Serious: Yes (Hospitalization, Other)
  Sender: FDA-Public Use
  Company Number: US-009507513-1111USA03153

PATIENT
  Sex: Female
  Weight: 72.56 kg

DRUGS (6)
  1. BONIVA [Suspect]
     Active Substance: IBANDRONATE SODIUM
     Indication: OSTEOPOROSIS
     Dosage: 150 MG, UNKNOWN
     Route: 065
     Dates: start: 200506, end: 200511
  2. VITAMINS (UNSPECIFIED) [Concomitant]
     Active Substance: VITAMINS
     Indication: ROUTINE HEALTH MAINTENANCE
     Dosage: UNK
     Route: 048
     Dates: start: 1993
  3. CALCIUM (UNSPECIFIED) [Concomitant]
     Active Substance: CALCIUM
     Indication: ROUTINE HEALTH MAINTENANCE
     Dosage: UNK, QD
     Route: 048
     Dates: start: 1993
  4. VITAMIN D [Concomitant]
     Active Substance: CHOLECALCIFEROL
     Indication: ROUTINE HEALTH MAINTENANCE
     Dosage: UNK, QD
     Route: 048
     Dates: start: 1993
  5. FOSAMAX [Suspect]
     Active Substance: ALENDRONATE SODIUM
     Indication: STRESS FRACTURE
     Dosage: 70 MG, QW
     Route: 048
     Dates: start: 200303, end: 200805
  6. FOSAMAX [Suspect]
     Active Substance: ALENDRONATE SODIUM
     Indication: OSTEOPOROSIS
     Dosage: 10 MG, QD
     Route: 048
     Dates: start: 19960801, end: 200506

REACTIONS (27)
  - Musculoskeletal pain [Unknown]
  - Hypothyroidism [Not Recovered/Not Resolved]
  - Chronic obstructive pulmonary disease [Not Recovered/Not Resolved]
  - Fungal infection [Unknown]
  - Anaemia [Unknown]
  - Bone formation increased [Unknown]
  - Pain in extremity [Unknown]
  - Hypersensitivity [Not Recovered/Not Resolved]
  - Radius fracture [Recovered/Resolved]
  - Asthma [Not Recovered/Not Resolved]
  - Bone neoplasm [Unknown]
  - Spinal compression fracture [Recovering/Resolving]
  - Clostridium difficile colitis [Unknown]
  - Gastrointestinal haemorrhage [Unknown]
  - Fall [Unknown]
  - Benign neoplasm [Unknown]
  - Haemorrhagic anaemia [Recovered/Resolved]
  - Neoplasm [Unknown]
  - Fall [Unknown]
  - Gastrooesophageal reflux disease [Not Recovered/Not Resolved]
  - Herpes zoster [Unknown]
  - Dysphonia [Unknown]
  - Femur fracture [Recovered/Resolved with Sequelae]
  - Osteoarthritis [Unknown]
  - Lumbar spinal stenosis [Unknown]
  - Rib fracture [Recovered/Resolved]
  - Arthralgia [Unknown]

NARRATIVE: CASE EVENT DATE: 19960926
